FAERS Safety Report 19688512 (Version 3)
Quarter: 2021Q3

REPORT INFORMATION
  Report Type: Spontaneous
  Country: US (occurrence: US)
  Receive Date: 20210811
  Receipt Date: 20210826
  Transmission Date: 20211014
  Serious: No
  Sender: FDA-Public Use
  Company Number: US-SA-2021SA254629

PATIENT
  Age: 72 Year
  Sex: Female

DRUGS (1)
  1. ENOXAPARIN SODIUM ? WINTHROP [Suspect]
     Active Substance: ENOXAPARIN SODIUM
     Indication: DEEP VEIN THROMBOSIS
     Dosage: 70 MG, BID (DRUG STRUCTURE DOSAGE : 70 MG BID DRUG INTERVAL DOSAGE : TWICE A DAY DRUG TREATMENT DURA
     Route: 065

REACTIONS (5)
  - Incorrect dose administered [Unknown]
  - Product use complaint [Unknown]
  - Liquid product physical issue [Unknown]
  - Abdominal rigidity [Unknown]
  - Skin discolouration [Unknown]
